FAERS Safety Report 15208370 (Version 1)
Quarter: 2018Q3

REPORT INFORMATION
  Report Type: Spontaneous
  Country: US (occurrence: US)
  Receive Date: 20180727
  Receipt Date: 20180727
  Transmission Date: 20181010
  Serious: No
  Sender: FDA-Public Use
  Company Number: US-009507513-1412USA006554

PATIENT
  Age: 41 Year
  Sex: Female

DRUGS (4)
  1. RITONAVIR. [Suspect]
     Active Substance: RITONAVIR
     Dosage: 100 DF, QD
     Route: 048
     Dates: start: 20140115
  2. EMTRICITABINE (+) TENOFOVIR DISOPROXIL FUMARATE [Suspect]
     Active Substance: EMTRICITABINE\TENOFOVIR DISOPROXIL
     Dosage: 1 DF, QD
     Route: 048
     Dates: start: 20140115
  3. DARUNAVIR [Suspect]
     Active Substance: DARUNAVIR
     Dosage: 800 DF, QD
     Route: 048
     Dates: start: 20140115
  4. ISENTRESS [Suspect]
     Active Substance: RALTEGRAVIR POTASSIUM
     Dosage: 400 DF, QD
     Route: 048
     Dates: start: 20140115

REACTIONS (3)
  - Maternal exposure during pregnancy [Recovered/Resolved]
  - Premature delivery [Unknown]
  - No adverse event [Unknown]

NARRATIVE: CASE EVENT DATE: 20140423
